FAERS Safety Report 23773350 (Version 4)
Quarter: 2024Q2

REPORT INFORMATION
  Report Type: Spontaneous
  Country: JP (occurrence: JP)
  Receive Date: 20240423
  Receipt Date: 20240608
  Transmission Date: 20240716
  Serious: Yes (Death, Other)
  Sender: FDA-Public Use
  Company Number: JP-UNITED THERAPEUTICS-UNT-2023-036584

PATIENT
  Age: 78 Year
  Sex: Female

DRUGS (6)
  1. TYVASO [Suspect]
     Active Substance: TREPROSTINIL
     Indication: Pulmonary arterial hypertension
     Dosage: 30 ?G, QID
     Dates: start: 20231129
  2. TYVASO [Suspect]
     Active Substance: TREPROSTINIL
     Indication: Systemic scleroderma
     Dosage: 54 ?G, QID
  3. TYVASO [Suspect]
     Active Substance: TREPROSTINIL
     Indication: Pulmonary capillary haemangiomatosis
  4. TYVASO [Suspect]
     Active Substance: TREPROSTINIL
     Indication: Pulmonary veno-occlusive disease
  5. PREDNISOLONE [Suspect]
     Active Substance: PREDNISOLONE
     Indication: Systemic scleroderma
     Dosage: UNK
     Route: 065
  6. PREDNISOLONE [Suspect]
     Active Substance: PREDNISOLONE
     Indication: Rheumatoid arthritis

REACTIONS (10)
  - Urinary tract infection [Fatal]
  - Sepsis [Fatal]
  - Pneumonia [Unknown]
  - Oropharyngeal discomfort [Not Recovered/Not Resolved]
  - Skin ulcer [Unknown]
  - Immobilisation syndrome [Unknown]
  - Systemic scleroderma [Unknown]
  - Pulmonary veno-occlusive disease [Unknown]
  - Pulmonary capillary haemangiomatosis [Unknown]
  - Off label use [Unknown]

NARRATIVE: CASE EVENT DATE: 20231129
